FAERS Safety Report 23933313 (Version 1)
Quarter: 2024Q2

REPORT INFORMATION
  Report Type: Spontaneous
  Country: BE (occurrence: BE)
  Receive Date: 20240603
  Receipt Date: 20240603
  Transmission Date: 20240715
  Serious: Yes (Disabling, Other)
  Sender: FDA-Public Use
  Company Number: BE-SA-SAC20240530000050

PATIENT
  Sex: Male

DRUGS (1)
  1. TOUJEO [Suspect]
     Active Substance: INSULIN GLARGINE
     Indication: Diabetes mellitus
     Dosage: UNK
     Route: 065
     Dates: start: 20220921

REACTIONS (4)
  - Optic ischaemic neuropathy [Unknown]
  - Papilloedema [Unknown]
  - Loss of personal independence in daily activities [Unknown]
  - Visual impairment [Unknown]

NARRATIVE: CASE EVENT DATE: 20220923
